FAERS Safety Report 7251222-6 (Version None)
Quarter: 2011Q1

REPORT INFORMATION
  Report Type: 
  Country: None (occurrence: None)
  Receive Date: 20110119
  Receipt Date: 20110111
  Transmission Date: 20110831
  Serious: Yes (Hospitalization)
  Sender: FDA-Public Use
  Company Number: 016875

PATIENT
  Sex: Female
  Weight: 69.5 kg

DRUGS (16)
  1. CARVEDILOL [Concomitant]
  2. PREDNISONE [Concomitant]
  3. HYDROCORTISONE [Concomitant]
  4. ENALAPRIL MALEATE [Concomitant]
  5. FLUOXETINE HCL [Concomitant]
  6. CERTOLIZUMAB PEGOL (CERTOLIZUMAB PEGOL) [Suspect]
     Indication: RHEUMATOID ARTHRITIS
     Dosage: (400 MG 1X/2 WEEKS SUBCUTANEOUS), (200 MG  1X/2 WEEKS SUBCUTANEOUS)
     Route: 058
     Dates: start: 20080110, end: 20100526
  7. CERTOLIZUMAB PEGOL (CERTOLIZUMAB PEGOL) [Suspect]
     Indication: RHEUMATOID ARTHRITIS
     Dosage: (400 MG 1X/2 WEEKS SUBCUTANEOUS), (200 MG  1X/2 WEEKS SUBCUTANEOUS)
     Route: 058
     Dates: start: 20060829, end: 20071226
  8. METHOTREXATE [Concomitant]
  9. FOLIC ACID [Concomitant]
  10. OMEPRAZOLE [Concomitant]
  11. MELOXICAM [Concomitant]
  12. REN-HUR (ALL OTHER THERAPEUTIC PRODUCTS) [Concomitant]
  13. DORIXINA RELAX [Concomitant]
  14. SYSTANE /02034401/ [Concomitant]
  15. PANTOPRAZOLE [Concomitant]
  16. ACETAMINOPHEN [Concomitant]

REACTIONS (6)
  - GASTROENTERITIS [None]
  - HYPERTENSION [None]
  - CONDITION AGGRAVATED [None]
  - BRONCHITIS [None]
  - ISCHAEMIC CARDIOMYOPATHY [None]
  - HYPERGLYCAEMIA [None]
